FAERS Safety Report 7205215-5 (Version None)
Quarter: 2010Q4

REPORT INFORMATION
  Report Type: 
  Country: None (occurrence: None)
  Receive Date: 20101231
  Receipt Date: 20101220
  Transmission Date: 20110411
  Serious: No
  Sender: FDA-Public Use
  Company Number: US-BIOGENIDEC-2010BI038069

PATIENT
  Age: 52 Year
  Sex: Female

DRUGS (2)
  1. TYSABRI [Suspect]
     Indication: MULTIPLE SCLEROSIS
     Route: 042
     Dates: start: 20090528, end: 20101122
  2. BENADRYL [Concomitant]
     Indication: PREMEDICATION
     Route: 048

REACTIONS (4)
  - ASTHENIA [None]
  - HYPERSENSITIVITY [None]
  - INFUSION RELATED REACTION [None]
  - MOBILITY DECREASED [None]
